FAERS Safety Report 18354625 (Version 1)
Quarter: 2020Q4

REPORT INFORMATION
  Report Type: Spontaneous
  Country: US (occurrence: US)
  Receive Date: 20201006
  Receipt Date: 20201006
  Transmission Date: 20210114
  Serious: Yes (Death, Hospitalization)
  Sender: FDA-Public Use
  Company Number: None

PATIENT
  Sex: Female
  Weight: 56.1 kg

DRUGS (1)
  1. DOXIL [Suspect]
     Active Substance: DOXORUBICIN HYDROCHLORIDE
     Dates: end: 20200908

REACTIONS (11)
  - Vomiting [None]
  - Cerebral cavernous malformation [None]
  - Fatigue [None]
  - Metastases to central nervous system [None]
  - Disease progression [None]
  - Hypoalbuminaemia [None]
  - Haemoglobin decreased [None]
  - Nausea [None]
  - Cerebral infarction [None]
  - Brain scan abnormal [None]
  - Syncope [None]

NARRATIVE: CASE EVENT DATE: 20200923
